FAERS Safety Report 5785940-3 (Version None)
Quarter: 2008Q2

REPORT INFORMATION
  Report Type: 
  Country: None (occurrence: None)
  Receive Date: 20080624
  Receipt Date: 20070608
  Transmission Date: 20081010
  Serious: No
  Sender: FDA-Public Use
  Company Number: US-ASTRAZENECA-2007UW13821

PATIENT
  Age: 82 Year
  Sex: Female
  Weight: 47.6 kg

DRUGS (6)
  1. PULMICORT-100 [Suspect]
     Route: 055
  2. FOSAMAX [Concomitant]
  3. WATER PILL [Concomitant]
  4. BLOOD PRESSURE PILL [Concomitant]
  5. MULTI-VITAMIN [Concomitant]
  6. POTASSIUM CHLORIDE [Concomitant]

REACTIONS (1)
  - DYSPEPSIA [None]
